FAERS Safety Report 7519804-1 (Version None)
Quarter: 2011Q2

REPORT INFORMATION
  Report Type: 
  Country: None (occurrence: None)
  Receive Date: 20110602
  Receipt Date: 20110526
  Transmission Date: 20111010
  Serious: Yes (Hospitalization)
  Sender: FDA-Public Use
  Company Number: CH-ABBOTT-11P-151-0728580-00

PATIENT
  Age: 18 Year
  Sex: Female

DRUGS (2)
  1. TRUVADA [Suspect]
     Indication: PROPHYLAXIS AGAINST HIV INFECTION
     Dosage: 200MG EMTRICITABIN / 245MG TENOFOVIR
     Route: 048
     Dates: start: 20090427, end: 20090508
  2. KALETRA [Suspect]
     Indication: PROPHYLAXIS AGAINST HIV INFECTION
     Dosage: 200MG LOPINAVIR / 50MG RITONAVIR,2 IN 2D
     Route: 048
     Dates: start: 20090427, end: 20090508

REACTIONS (13)
  - EOSINOPHILIA [None]
  - FAECES DISCOLOURED [None]
  - ABDOMINAL PAIN UPPER [None]
  - LIVER INJURY [None]
  - PYREXIA [None]
  - NAUSEA [None]
  - HAEMANGIOMA OF LIVER [None]
  - LIVER FUNCTION TEST ABNORMAL [None]
  - TRANSAMINASES INCREASED [None]
  - C-REACTIVE PROTEIN INCREASED [None]
  - CONSTIPATION [None]
  - GENERAL PHYSICAL HEALTH DETERIORATION [None]
  - DIARRHOEA [None]
